FAERS Safety Report 7564891-8 (Version None)
Quarter: 2011Q2

REPORT INFORMATION
  Report Type: 
  Country: None (occurrence: None)
  Receive Date: 20110622
  Receipt Date: 20110404
  Transmission Date: 20111010
  Serious: Yes (Other)
  Sender: FDA-Public Use
  Company Number: US-MYLANLABS-2011S1002339

PATIENT
  Age: 62 Year
  Sex: Female
  Weight: 72.58 kg

DRUGS (11)
  1. CLOZAPINE [Suspect]
     Indication: PSYCHOTIC DISORDER
     Dates: start: 19960101, end: 20110207
  2. MAPAP [Concomitant]
  3. CLOZAPINE [Suspect]
     Indication: AUTISM
     Dates: start: 19960101, end: 20110207
  4. SIMVASTATIN [Concomitant]
  5. LEVOTHYROXINE SODIUM [Concomitant]
  6. PROLIXIN /00000602/ [Concomitant]
  7. LORATADINE [Concomitant]
  8. MULTI-VITAMINS [Concomitant]
  9. CALCIUM CARBONATE [Concomitant]
  10. COGENTIN [Concomitant]
  11. ASPIRIN [Concomitant]

REACTIONS (2)
  - GRANULOCYTOPENIA [None]
  - LEUKOPENIA [None]
